FAERS Safety Report 14980132 (Version 1)
Quarter: 2018Q2

REPORT INFORMATION
  Report Type: Spontaneous
  Country: US (occurrence: US)
  Receive Date: 20180606
  Receipt Date: 20180606
  Transmission Date: 20180711
  Serious: Yes (Death)
  Sender: FDA-Public Use
  Company Number: US-PFIZER INC-2018230895

PATIENT
  Age: 62 Year
  Sex: Male
  Weight: 69 kg

DRUGS (1)
  1. INLYTA [Suspect]
     Active Substance: AXITINIB
     Indication: NEOPLASM MALIGNANT
     Dosage: 5 MG, 1X/DAY
     Route: 048
     Dates: end: 201804

REACTIONS (6)
  - Back pain [Unknown]
  - Neoplasm progression [Unknown]
  - Neck pain [Unknown]
  - Blood pressure increased [Unknown]
  - Intracranial aneurysm [Fatal]
  - Musculoskeletal pain [Unknown]
